FAERS Safety Report 6115505-5 (Version None)
Quarter: 2009Q1

REPORT INFORMATION
  Report Type: 
  Country: None (occurrence: None)
  Receive Date: 20090313
  Receipt Date: 20090305
  Transmission Date: 20090719
  Serious: Yes (Hospitalization, Other)
  Sender: FDA-Public Use
  Company Number: US-PURDUE-USA_2009_0037313

PATIENT
  Sex: Male

DRUGS (1)
  1. OXYCONTIN [Suspect]
     Indication: PAIN
     Dosage: 60 MG, TID
     Dates: start: 20010101, end: 20080201

REACTIONS (9)
  - ABASIA [None]
  - CONVULSION [None]
  - DRUG DEPENDENCE [None]
  - DRUG TOLERANCE [None]
  - FALL [None]
  - HEAD INJURY [None]
  - MENTAL IMPAIRMENT [None]
  - MYOCARDIAL INFARCTION [None]
  - THERAPEUTIC RESPONSE DECREASED [None]
